FAERS Safety Report 7546393-8 (Version None)
Quarter: 2011Q2

REPORT INFORMATION
  Report Type: 
  Country: None (occurrence: None)
  Receive Date: 20110614
  Receipt Date: 20110608
  Transmission Date: 20111010
  Serious: Yes (Other)
  Sender: FDA-Public Use
  Company Number: US-PFIZER INC-2011126305

PATIENT
  Sex: Female
  Weight: 58.957 kg

DRUGS (11)
  1. LIPITAC [Concomitant]
     Dosage: UNK
  2. ALENDRONATE SODIUM [Concomitant]
     Dosage: UNK
  3. CALCIUM WITH VITAMIN D [Concomitant]
     Dosage: UNK
  4. FISH OIL [Concomitant]
     Dosage: UNK
  5. LIPITOR [Suspect]
     Dosage: UNK
  6. CRESTOR [Suspect]
     Dosage: UNK
  7. GLUCOSAMINE W/CHONDROITIN SULFATES [Concomitant]
     Dosage: UNK
  8. CENTRUM [Concomitant]
  9. NIASPAN [Suspect]
     Dosage: 1000 MG, UNK
  10. NIASPAN [Suspect]
     Indication: BLOOD CHOLESTEROL ABNORMAL
     Dosage: 500 MG, AT BEDTIME
     Dates: start: 20100101
  11. PEPCID [Concomitant]
     Dosage: UNK

REACTIONS (3)
  - PRESYNCOPE [None]
  - FLUSHING [None]
  - MYALGIA [None]
